FAERS Safety Report 23462344 (Version 3)
Quarter: 2024Q1

REPORT INFORMATION
  Report Type: Spontaneous
  Country: DE (occurrence: DE)
  Receive Date: 20240131
  Receipt Date: 20240223
  Transmission Date: 20240410
  Serious: Yes (Hospitalization, Other)
  Sender: FDA-Public Use
  Company Number: None

PATIENT
  Age: 77 Year
  Sex: Female

DRUGS (18)
  1. ETANERCEPT [Suspect]
     Active Substance: ETANERCEPT
     Indication: Rheumatoid arthritis
     Dosage: 50 MG
     Route: 065
     Dates: start: 201610, end: 201807
  2. METHOTREXATE [Suspect]
     Active Substance: METHOTREXATE
     Indication: Product used for unknown indication
     Dosage: PER WEEKUNK
     Route: 065
  3. ORENCIA [Suspect]
     Active Substance: ABATACEPT
     Indication: Rheumatoid arthritis
     Dosage: ONCE DAILYUNK
     Route: 065
  4. XELJANZ [Suspect]
     Active Substance: TOFACITINIB CITRATE
     Dosage: 10 MG
     Route: 065
  5. XELJANZ [Suspect]
     Active Substance: TOFACITINIB CITRATE
     Indication: Product used for unknown indication
     Dosage: 5 MG
     Route: 065
     Dates: start: 201807
  6. ASPIRIN [Concomitant]
     Active Substance: ASPIRIN
     Indication: Product used for unknown indication
     Dosage: 100MG/DAYUNK
     Route: 065
  7. ATORVASTATIN [Concomitant]
     Active Substance: ATORVASTATIN
     Indication: Product used for unknown indication
     Dosage: 40MG/DAYUNK
     Route: 065
  8. BISOPROLOL [Concomitant]
     Active Substance: BISOPROLOL\BISOPROLOL FUMARATE
     Indication: Product used for unknown indication
     Dosage: 5MG/DAYUNK
     Route: 065
  9. Dekristol pro [Concomitant]
     Indication: Product used for unknown indication
     Dosage: 20.000 IU [INTERNATIONAL UNITS]/WEEKUNK
     Route: 065
  10. Dekristol pro [Concomitant]
     Dosage: 20.000 IU [INTERNATIONAL UNITS]/WEEKUNK
     Route: 065
  11. Dekristol pro [Concomitant]
     Dosage: 20.000 IU [INTERNATIONAL UNITS]/WEEKUNK
     Route: 065
  12. Dekristol pro [Concomitant]
     Dosage: 20.000 IU [INTERNATIONAL UNITS]/WEEKUNK
     Route: 065
  13. Dekristol pro [Concomitant]
     Dosage: 20.000 IU [INTERNATIONAL UNITS]/WEEKUNK
     Route: 065
  14. FOLIC ACID [Concomitant]
     Active Substance: FOLIC ACID
     Indication: Product used for unknown indication
     Dosage: 5MG/DAYUNK
     Route: 065
  15. FOSTER [Concomitant]
     Active Substance: BECLOMETHASONE\FORMOTEROL
     Indication: Product used for unknown indication
     Dosage: 100?G/1 STROKE/DAYUNK
     Route: 065
  16. LEVOTHYROXINE SODIUM [Concomitant]
     Active Substance: LEVOTHYROXINE SODIUM
     Indication: Product used for unknown indication
     Dosage: 100?G/150G/DAYUNK
     Route: 065
  17. PANTOPRAZOLE [Concomitant]
     Active Substance: PANTOPRAZOLE
     Indication: Product used for unknown indication
     Dosage: 40MG/DAYUNK
     Route: 065
  18. TELMISARTAN [Concomitant]
     Active Substance: TELMISARTAN
     Indication: Product used for unknown indication
     Dosage: 80MG/12.5MG 0.5/DAYUNK
     Route: 065

REACTIONS (5)
  - Metastases to meninges [Not Recovered/Not Resolved]
  - Lung adenocarcinoma [Unknown]
  - Lung neoplasm malignant [Not Recovered/Not Resolved]
  - Renal function test abnormal [Not Recovered/Not Resolved]
  - Off label use [Unknown]

NARRATIVE: CASE EVENT DATE: 20200101
